FAERS Safety Report 5564367-3 (Version None)
Quarter: 2007Q4

REPORT INFORMATION
  Report Type: 
  Country: None (occurrence: None)
  Receive Date: 20071218
  Receipt Date: 20071214
  Transmission Date: 20080405
  Serious: Yes (Other)
  Sender: FDA-Public Use
  Company Number: JP-BRISTOL-MYERS SQUIBB COMPANY-14015135

PATIENT
  Age: 7 Month
  Sex: Female

DRUGS (4)
  1. CISPLATIN [Suspect]
     Indication: GLIOMA
     Dosage: GIVEN ON DAY 5.
  2. CYCLOPHOSPHAMIDE [Suspect]
     Indication: GLIOMA
     Dosage: 1 DOSAGE FORM - 1.5 GRAMS/M2 GIVEN ON DAY 1.
  3. ETOPOSIDE [Suspect]
     Indication: GLIOMA
     Dosage: GIVEN ON DAY 1 TO 5.
  4. VINCRISTINE SULFATE [Suspect]
     Indication: GLIOMA
     Dosage: GIVEN ON DAY 1.

REACTIONS (1)
  - HYPONATRAEMIA [None]
